APPROVED DRUG PRODUCT: SULFAMETHOXAZOLE AND TRIMETHOPRIM
Active Ingredient: SULFAMETHOXAZOLE; TRIMETHOPRIM
Strength: 800MG;160MG
Dosage Form/Route: TABLET;ORAL
Application: A071017 | Product #001 | TE Code: AB
Applicant: SUN PHARMACEUTICAL INDUSTRIES INC
Approved: Aug 25, 1986 | RLD: No | RS: No | Type: RX